FAERS Safety Report 11036900 (Version 1)
Quarter: 2015Q2

REPORT INFORMATION
  Report Type: Spontaneous
  Country: TR (occurrence: None)
  Receive Date: 20150414
  Receipt Date: 20150414
  Transmission Date: 20150821
  Serious: Yes (Other)
  Sender: FDA-Public Use
  Company Number: 2817621

PATIENT
  Age: 56 Year
  Sex: Female

DRUGS (4)
  1. CYTARABINE. [Suspect]
     Active Substance: CYTARABINE
     Indication: ACUTE MYELOID LEUKAEMIA
     Dosage: 100 MG/M2 MILLIGRAM(S)/SQ. METER (1 DAY)
  2. ALLOPURINOL. [Concomitant]
     Active Substance: ALLOPURINOL
  3. ONDANSETRON [Concomitant]
     Active Substance: ONDANSETRON
  4. IDARUBICIN [Concomitant]
     Active Substance: IDARUBICIN

REACTIONS (3)
  - Jaundice [None]
  - Pancytopenia [None]
  - Pyrexia [None]
